FAERS Safety Report 7384183-X (Version None)
Quarter: 2011Q1

REPORT INFORMATION
  Report Type: 
  Country: None (occurrence: None)
  Receive Date: 20110330
  Receipt Date: 20110323
  Transmission Date: 20110831
  Serious: Yes (Other)
  Sender: FDA-Public Use
  Company Number: B0709102A

PATIENT
  Age: 45 Year
  Sex: Male
  Weight: 80 kg

DRUGS (2)
  1. HEPTODIN [Suspect]
     Dosage: .1G PER DAY
     Route: 048
     Dates: start: 20100101
  2. HEPTODIN [Suspect]
     Indication: HEPATITIS B
     Dosage: .1G PER DAY
     Route: 048
     Dates: start: 19970101, end: 20000101

REACTIONS (3)
  - DRUG INEFFECTIVE [None]
  - HEPATIC CIRRHOSIS [None]
  - FATIGUE [None]
